FAERS Safety Report 14344568 (Version 1)
Quarter: 2018Q1

REPORT INFORMATION
  Report Type: Report from Study
  Country: US (occurrence: US)
  Receive Date: 20180102
  Receipt Date: 20180102
  Transmission Date: 20180509
  Serious: Yes (Other)
  Sender: FDA-Public Use
  Company Number: US-ROCHE-2045478

PATIENT
  Sex: Male

DRUGS (2)
  1. VALGANCICLOVIR. [Suspect]
     Active Substance: VALGANCICLOVIR
     Dosage: 450MG 2 TABLETS DAILY
     Route: 048
  2. VALGANCICLOVIR. [Suspect]
     Active Substance: VALGANCICLOVIR
     Indication: LUNG TRANSPLANT
     Dosage: 450MG 1 TABLETS DAILY
     Route: 048

REACTIONS (4)
  - Lymphoma [Recovering/Resolving]
  - Cytomegalovirus infection [Unknown]
  - Intentional product use issue [Unknown]
  - Off label use [Unknown]
